FAERS Safety Report 17478683 (Version 2)
Quarter: 2020Q1

REPORT INFORMATION
  Report Type: Report from Study
  Country: US (occurrence: US)
  Receive Date: 20200229
  Receipt Date: 20200303
  Transmission Date: 20200409
  Serious: Yes (Death, Other)
  Sender: FDA-Public Use
  Company Number: US-ROCHE-2557379

PATIENT
  Age: 68 Year
  Sex: Female
  Weight: 55.39 kg

DRUGS (2)
  1. ESBRIET [Suspect]
     Active Substance: PIRFENIDONE
     Indication: IDIOPATHIC PULMONARY FIBROSIS
     Dosage: 3 CAPSULES 3 TIMES A DAY ;ONGOING: NO
     Route: 048
     Dates: start: 2017, end: 20200219
  2. OXYGEN. [Concomitant]
     Active Substance: OXYGEN
     Indication: IDIOPATHIC PULMONARY FIBROSIS
     Dosage: OXYGEN THERAPY ALL THE TIME ;ONGOING: NO
     Route: 065
     Dates: start: 201906

REACTIONS (4)
  - Death [Fatal]
  - Cardiac failure congestive [Not Recovered/Not Resolved]
  - Dysphagia [Not Recovered/Not Resolved]
  - Lung disorder [Not Recovered/Not Resolved]

NARRATIVE: CASE EVENT DATE: 20200219
